FAERS Safety Report 15172553 (Version 1)
Quarter: 2018Q3

REPORT INFORMATION
  Report Type: Spontaneous
  Country: US (occurrence: US)
  Receive Date: 20180720
  Receipt Date: 20180720
  Transmission Date: 20181010
  Serious: Yes (Death)
  Sender: FDA-Public Use
  Company Number: US-PFIZER INC-2018284293

PATIENT
  Age: 74 Year
  Sex: Male

DRUGS (1)
  1. IBRANCE [Suspect]
     Active Substance: PALBOCICLIB
     Dosage: 125MG CAPSULE ONCE A DAY BY MOUTH FOR 21 DAYS THEN OFF FOR 7 DAYS
     Route: 048

REACTIONS (2)
  - Product use issue [Unknown]
  - Death [Fatal]
